FAERS Safety Report 16625042 (Version 1)
Quarter: 2019Q3

REPORT INFORMATION
  Report Type: Spontaneous
  Country: DE (occurrence: DE)
  Receive Date: 20190724
  Receipt Date: 20190724
  Transmission Date: 20191004
  Serious: Yes (Other)
  Sender: FDA-Public Use
  Company Number: DE-TEVA-2019-DE-1080597

PATIENT
  Age: 51 Year
  Sex: Male
  Weight: 62.5 kg

DRUGS (1)
  1. OLMESARTAN 40MG TABLETTEN [Suspect]
     Active Substance: OLMESARTAN
     Indication: HYPERTENSION
     Dosage: 40 MILLIGRAM DAILY;
     Route: 048
     Dates: start: 201808, end: 2018

REACTIONS (3)
  - Product substitution issue [Unknown]
  - Blood pressure increased [Recovered/Resolved]
  - Malaise [Recovered/Resolved]

NARRATIVE: CASE EVENT DATE: 201808
